FAERS Safety Report 13078985 (Version 3)
Quarter: 2017Q1

REPORT INFORMATION
  Report Type: Report from Study
  Country: FR (occurrence: FR)
  Receive Date: 20170102
  Receipt Date: 20170123
  Transmission Date: 20170428
  Serious: Yes (Death, Hospitalization, Other)
  Sender: FDA-Public Use
  Company Number: PHHY2016FR061588

PATIENT
  Age: 59 Year
  Sex: Female

DRUGS (2)
  1. EXEMESTANE. [Concomitant]
     Active Substance: EXEMESTANE
     Indication: PRODUCT USED FOR UNKNOWN INDICATION
     Dosage: 25 MG, QD
     Route: 065
     Dates: end: 20160105
  2. AFINITOR [Suspect]
     Active Substance: EVEROLIMUS
     Indication: BREAST CANCER
     Dosage: 10 MG, QD
     Route: 065
     Dates: start: 20150330, end: 20160105

REACTIONS (18)
  - Malignant peritoneal neoplasm [Unknown]
  - Malignant neoplasm progression [Fatal]
  - Ascites [Unknown]
  - Oedema peripheral [Unknown]
  - Generalised oedema [Not Recovered/Not Resolved]
  - Metastases to liver [Unknown]
  - Sensory disturbance [Unknown]
  - Pain [Unknown]
  - General physical health deterioration [Unknown]
  - Chest discomfort [Unknown]
  - Decreased appetite [Unknown]
  - Skin toxicity [Recovered/Resolved]
  - Fatigue [Unknown]
  - Dyspnoea [Unknown]
  - Metastases to bone [Fatal]
  - Second primary malignancy [Unknown]
  - Metastases to pleura [Unknown]
  - Limb reduction defect [Not Recovered/Not Resolved]

NARRATIVE: CASE EVENT DATE: 201503
